FAERS Safety Report 4640693-7 (Version None)
Quarter: 2005Q2

REPORT INFORMATION
  Report Type: 
  Country: None (occurrence: None)
  Receive Date: 20050419
  Receipt Date: 20050405
  Transmission Date: 20051028
  Serious: Yes (Death)
  Sender: FDA-Public Use
  Company Number: 100061

PATIENT
  Age: 53 Year
  Sex: Male

DRUGS (7)
  1. MABTHERA (RITUXIMAB) CONC FOR SOLUTION FOR INFUSION [Suspect]
     Indication: DIFFUSE LARGE B-CELL LYMPHOMA
     Dosage: 375 MG/M2, SINGLE, INTRAVENOUS
     Route: 042
     Dates: start: 20011030, end: 20011030
  2. CYCLOPHOSPHAMIDE [Suspect]
     Indication: DIFFUSE LARGE B-CELL LYMPHOMA
     Dosage: 750 MG/M2, SINGLE , INTRAVENOUS
     Route: 042
     Dates: start: 20011030, end: 20011030
  3. DOXORUBICIN HCL [Suspect]
     Indication: DIFFUSE LARGE B-CELL LYMPHOMA
     Dosage: 50 MG/M2, SINGLE, INTRAVENOUS
     Route: 042
     Dates: start: 20011030, end: 20011030
  4. VINCRISTINE [Suspect]
     Indication: DIFFUSE LARGE B-CELL LYMPHOMA
     Dosage: 2 MG, SINGLE, INTRAVENOUS
     Route: 042
     Dates: start: 20011030, end: 20011030
  5. PREDNISONE [Suspect]
     Indication: DIFFUSE LARGE B-CELL LYMPHOMA
     Dosage: 100 MG, QDX5D/21DC, ORAL
     Route: 048
     Dates: start: 20011030
  6. ETOPOSIDE [Suspect]
     Indication: DIFFUSE LARGE B-CELL LYMPHOMA
     Dosage: 100 MG/M2, SINGLE, INTRAVENOUS
     Route: 042
     Dates: start: 20011030
  7. ALLOPURINOL (ALLOPURINOL)SOLUTION FOR INJECTION [Concomitant]

REACTIONS (12)
  - ACIDOSIS [None]
  - ANURIA [None]
  - CONFUSIONAL STATE [None]
  - DIZZINESS [None]
  - LUNG INFILTRATION [None]
  - MULTI-ORGAN FAILURE [None]
  - NEUTROPENIA [None]
  - PYREXIA [None]
  - RESPIRATORY FAILURE [None]
  - SEPTIC SHOCK [None]
  - TACHYCARDIA [None]
  - THERAPY NON-RESPONDER [None]
